FAERS Safety Report 4445388-0 (Version None)
Quarter: 2004Q3

REPORT INFORMATION
  Report Type: 
  Country: None (occurrence: None)
  Receive Date: 20040729
  Receipt Date: 20031008
  Transmission Date: 20050211
  Serious: Yes (Hospitalization)
  Sender: FDA-Public Use
  Company Number: 2003UW12842

PATIENT
  Age: 88 Year
  Sex: Female

DRUGS (4)
  1. ELAVIL [Suspect]
     Indication: INSOMNIA
     Dosage: 25 MG HS PO
     Route: 048
  2. ENALAPRIL MALEATE [Concomitant]
  3. DIAZEPAM [Concomitant]
  4. FUROSEMIDE [Concomitant]

REACTIONS (2)
  - CONFUSIONAL STATE [None]
  - HYPONATRAEMIA [None]
